FAERS Safety Report 15130085 (Version 2)
Quarter: 2019Q2

REPORT INFORMATION
  Report Type: Report from Study
  Country: DE (occurrence: DE)
  Receive Date: 20180711
  Receipt Date: 20190401
  Transmission Date: 20190711
  Serious: Yes (Hospitalization)
  Sender: FDA-Public Use
  Company Number: PHHY2018DE037008

PATIENT
  Sex: Female

DRUGS (3)
  1. COSENTYX [Suspect]
     Active Substance: SECUKINUMAB
     Indication: PSORIASIS
     Dosage: 300 MG, UNK
     Route: 058
     Dates: start: 201603
  2. COSENTYX [Suspect]
     Active Substance: SECUKINUMAB
     Dosage: 300 UNK, UNK
     Route: 065
     Dates: start: 20160714
  3. COSENTYX [Suspect]
     Active Substance: SECUKINUMAB
     Dosage: 300 UNK, UNK
     Route: 065
     Dates: start: 20160616, end: 20160714

REACTIONS (2)
  - Depression [Recovering/Resolving]
  - Erysipelas [Recovered/Resolved]

NARRATIVE: CASE EVENT DATE: 20180406
